FAERS Safety Report 7315285-1 (Version None)
Quarter: 2011Q1

REPORT INFORMATION
  Report Type: 
  Country: None (occurrence: None)
  Receive Date: 20110218
  Receipt Date: 20110218
  Transmission Date: 20110831
  Serious: Yes (Life-Threatening, Other)
  Sender: FDA-Public Use
  Company Number: None

PATIENT
  Age: 43 Year
  Sex: Female
  Weight: 117.9352 kg

DRUGS (1)
  1. ALPRAZOLAM [Suspect]
     Indication: ANXIETY
     Dosage: .5 2X DAILY
     Dates: start: 19960101, end: 20110101

REACTIONS (3)
  - FEAR [None]
  - MEMORY IMPAIRMENT [None]
  - DRUG DEPENDENCE [None]
